FAERS Safety Report 7143201 (Version 7)
Quarter: 2013Q2

REPORT INFORMATION
  Report Type: Spontaneous
  Country: US (occurrence: US)
  Receive Date: 20091008
  Receipt Date: 20130607
  Transmission Date: 20140414
  Serious: Yes (Hospitalization)
  Sender: FDA-Public Use
  Company Number: US-BIOGENIDEC-2009BI031956

PATIENT
  Age: 45 Year
  Sex: Female
  Weight: 72 kg

DRUGS (6)
  1. AVONEX [Suspect]
     Indication: MULTIPLE SCLEROSIS
     Route: 030
     Dates: start: 20030103, end: 2003
  2. AVONEX [Suspect]
     Indication: MULTIPLE SCLEROSIS
     Route: 030
     Dates: start: 2003, end: 20091006
  3. AVONEX [Suspect]
     Indication: MULTIPLE SCLEROSIS
     Route: 030
     Dates: start: 20110203
  4. AVONEX [Suspect]
     Indication: MULTIPLE SCLEROSIS
     Route: 030
     Dates: end: 201206
  5. AVONEX [Suspect]
     Indication: MULTIPLE SCLEROSIS
     Route: 030
     Dates: start: 201206
  6. STERIOD INJECTION (NOS) [Concomitant]
     Indication: MUSCULOSKELETAL PAIN

REACTIONS (10)
  - Invasive ductal breast carcinoma [Recovered/Resolved]
  - Cellulitis [Unknown]
  - Mobility decreased [Unknown]
  - Breast mass [Recovered/Resolved]
  - Benign breast neoplasm [Not Recovered/Not Resolved]
  - Breast oedema [Recovered/Resolved]
  - Oedema peripheral [Recovered/Resolved]
  - Multiple sclerosis relapse [Unknown]
  - Arthralgia [Not Recovered/Not Resolved]
  - Headache [Unknown]
